FAERS Safety Report 24152845 (Version 1)
Quarter: 2024Q3

REPORT INFORMATION
  Report Type: Spontaneous
  Country: US (occurrence: None)
  Receive Date: 20240729
  Receipt Date: 20240729
  Transmission Date: 20241016
  Serious: Yes (Other)
  Sender: Public
  Company Number: None

PATIENT
  Age: 41 Year
  Sex: Male

DRUGS (1)
  1. FERRLECIT [Suspect]
     Active Substance: SODIUM FERRIC GLUCONATE COMPLEX
     Indication: Iron deficiency
     Dosage: OTHER FREQUENCY : ONCE;?
     Route: 041

REACTIONS (4)
  - Urticaria [None]
  - Limb discomfort [None]
  - Peripheral swelling [None]
  - Infusion related reaction [None]

NARRATIVE: CASE EVENT DATE: 20240622
